FAERS Safety Report 16825114 (Version 3)
Quarter: 2021Q2

REPORT INFORMATION
  Report Type: Spontaneous
  Country: NL (occurrence: NL)
  Receive Date: 20190919
  Receipt Date: 20210529
  Transmission Date: 20210716
  Serious: Yes (Death, Hospitalization, Other)
  Sender: FDA-Public Use
  Company Number: NL-AUROBINDO-AUR-APL-2018-004291

PATIENT
  Age: 68 Year
  Sex: Male

DRUGS (16)
  1. IFOSFAMIDE. [Suspect]
     Active Substance: IFOSFAMIDE
     Indication: DIFFUSE LARGE B-CELL LYMPHOMA
     Dosage: UNK, RECEIVED AS A PART OF R?VIM REGIMEN
     Route: 065
  2. DEXAMETHASON [Suspect]
     Active Substance: DEXAMETHASONE
     Indication: DIFFUSE LARGE B-CELL LYMPHOMA RECURRENT
     Dosage: UNK, RECEIVED AS A PART OF R?VIM REGIMEN
     Route: 065
  3. CISPLATIN. [Suspect]
     Active Substance: CISPLATIN
     Indication: DIFFUSE LARGE B-CELL LYMPHOMA
     Dosage: UNK, RECEIVED AS A PART OF BEAM REGIMEN.
     Route: 065
  4. DOXORUBICIN [Suspect]
     Active Substance: DOXORUBICIN
     Indication: DIFFUSE LARGE B-CELL LYMPHOMA
     Dosage: UNK
     Route: 065
  5. CYTARABINE. [Suspect]
     Active Substance: CYTARABINE
     Indication: DIFFUSE LARGE B-CELL LYMPHOMA
     Dosage: UNK, RECEIVED AS A PART OF R?DHAP AND BEAM REGIMEN
     Route: 065
  6. CARMUSTINE. [Suspect]
     Active Substance: CARMUSTINE
     Indication: DIFFUSE LARGE B-CELL LYMPHOMA
     Dosage: UNK, RECEIVED AS A PART OF BEAM REGIMEN
     Route: 065
  7. CYCLOPHOSPHAMIDE. [Suspect]
     Active Substance: CYCLOPHOSPHAMIDE
     Indication: DIFFUSE LARGE B-CELL LYMPHOMA
     Dosage: UNK, RECEIVED AS A PART OF R?VIM REGIMEN
     Route: 065
  8. METHOTREXATE. [Suspect]
     Active Substance: METHOTREXATE
     Dosage: UNK
     Route: 065
  9. PREDNISOLONE. [Suspect]
     Active Substance: PREDNISOLONE
     Indication: DIFFUSE LARGE B-CELL LYMPHOMA
     Dosage: UNK, RECEIVED AS A PART OF R?CHOP REGIMEN
     Route: 065
  10. VINCRISTINE [Suspect]
     Active Substance: VINCRISTINE
     Dosage: UNK
     Route: 065
  11. METHOTREXATE. [Suspect]
     Active Substance: METHOTREXATE
     Indication: DIFFUSE LARGE B-CELL LYMPHOMA RECURRENT
     Dosage: UNK, RECEIVED AS A PART OF R?VIM REGIMEN
     Route: 065
  12. RITUXIMAB. [Suspect]
     Active Substance: RITUXIMAB
     Indication: DIFFUSE LARGE B-CELL LYMPHOMA RECURRENT
  13. MELPHALAN. [Suspect]
     Active Substance: MELPHALAN
     Indication: DIFFUSE LARGE B-CELL LYMPHOMA
     Dosage: UNK, RECEIVED AS A PART OF BEAM REGIMEN
     Route: 065
  14. ETOPOSIDE. [Suspect]
     Active Substance: ETOPOSIDE
     Indication: DIFFUSE LARGE B-CELL LYMPHOMA
     Dosage: UNK, RECEIVED AS A PART OF R?VIM REGIMEN
     Route: 065
  15. RITUXIMAB. [Suspect]
     Active Substance: RITUXIMAB
     Indication: EXTRANODAL MARGINAL ZONE B-CELL LYMPHOMA (MALT TYPE)
     Dosage: UNK, RECEIVED AS A PART OF R?CHOP, R?VIM AND R?DHAP
     Route: 065
  16. VINCRISTINE [Suspect]
     Active Substance: VINCRISTINE
     Indication: DIFFUSE LARGE B-CELL LYMPHOMA
     Dosage: UNK, RECEIVED AS A PART OF R?VIM REGIMEN
     Route: 065

REACTIONS (9)
  - Emphysema [Unknown]
  - Multiple organ dysfunction syndrome [Fatal]
  - Parainfluenzae virus infection [Unknown]
  - Delirium [Unknown]
  - Dyspnoea [Unknown]
  - Product use in unapproved indication [Unknown]
  - Productive cough [Unknown]
  - Pneumocystis jirovecii pneumonia [Unknown]
  - Pulmonary embolism [Unknown]
